FAERS Safety Report 20447596 (Version 1)
Quarter: 2022Q1

REPORT INFORMATION
  Report Type: Report from Study
  Country: US (occurrence: US)
  Receive Date: 20220209
  Receipt Date: 20220209
  Transmission Date: 20220423
  Serious: Yes (Other)
  Sender: FDA-Public Use
  Company Number: US-HRARD-2021000828

PATIENT
  Sex: Female

DRUGS (2)
  1. LYSODREN [Suspect]
     Active Substance: MITOTANE
     Dosage: 2500 MG TID, 2500 MG BID WAS TAKEN FOR ONE DAY AT AN UNSPECIFIED DATE
     Route: 048
     Dates: start: 20210216
  2. LYSODREN [Suspect]
     Active Substance: MITOTANE
     Dosage: 3000 MG (06 TABLETS) BID
     Route: 048
     Dates: start: 2021

REACTIONS (4)
  - Adrenal insufficiency [Not Recovered/Not Resolved]
  - Vomiting [Not Recovered/Not Resolved]
  - Diarrhoea [Not Recovered/Not Resolved]
  - Nausea [Not Recovered/Not Resolved]

NARRATIVE: CASE EVENT DATE: 20210101
